FAERS Safety Report 10446469 (Version 1)
Quarter: 2014Q3

REPORT INFORMATION
  Report Type: Not Available
  Country: US (occurrence: US)
  Receive Date: 20140911
  Receipt Date: 20140911
  Transmission Date: 20150326
  Serious: No
  Sender: FDA-Public Use
  Company Number: US-LUPIN PHARMACEUTICALS INC.-E2B_00002334

PATIENT
  Sex: Male
  Weight: 61.29 kg

DRUGS (1)
  1. CIPROFLOXACIN ORAL SUSPENSION 500MG/5ML [Suspect]
     Active Substance: CIPROFLOXACIN
     Indication: PROSTATE INFECTION
     Dates: start: 20140715

REACTIONS (3)
  - Liquid product physical issue [Not Recovered/Not Resolved]
  - Drug ineffective [Unknown]
  - Prostate infection [Not Recovered/Not Resolved]
